FAERS Safety Report 7503465-1 (Version None)
Quarter: 2011Q1

REPORT INFORMATION
  Report Type: 
  Country: None (occurrence: None)
  Receive Date: 20110322
  Receipt Date: 20101230
  Transmission Date: 20110831
  Serious: Yes (Hospitalization)
  Sender: FDA-Public Use
  Company Number: UTC-003893

PATIENT
  Age: 54 Year
  Sex: Female
  Weight: 82.7 kg

DRUGS (11)
  1. OXYGEN (OXYGEN) [Concomitant]
  2. NEURONTIN [Concomitant]
  3. FUROSEMIDE [Concomitant]
  4. COUMADIN [Concomitant]
  5. CYMBALTA [Concomitant]
  6. REVATIO [Concomitant]
  7. TYVASO [Suspect]
     Indication: PULMONARY ARTERIAL HYPERTENSION
     Dosage: (216 MCG, 1 D), INHALATION
     Route: 055
     Dates: start: 20101116
  8. SPIRONOLACTONE [Concomitant]
  9. HYDROCODONE BITARTRATE + ACETAMINOPHEN [Suspect]
     Indication: BACK PAIN
     Dosage: (5/500 MG), ORAL
     Route: 048
  10. OMEPRAZOLE [Concomitant]
  11. CHANTIX [Concomitant]

REACTIONS (6)
  - SYNCOPE [None]
  - HYPOTENSION [None]
  - HYPOPHAGIA [None]
  - MALAISE [None]
  - TOOTH ABSCESS [None]
  - TACHYCARDIA [None]
